FAERS Safety Report 5569357-2 (Version None)
Quarter: 2007Q4

REPORT INFORMATION
  Report Type: 
  Country: None (occurrence: None)
  Receive Date: 20071220
  Receipt Date: 20071212
  Transmission Date: 20080405
  Serious: Yes (Other)
  Sender: FDA-Public Use
  Company Number: JP-ELI_LILLY_AND_COMPANY-JP200702003575

PATIENT
  Age: 75 Year
  Sex: Male

DRUGS (2)
  1. GEMZAR [Suspect]
     Indication: TRANSITIONAL CELL CARCINOMA
     Dosage: 1000 MG/M2, OTHER
     Route: 042
  2. PACLITAXEL [Concomitant]
     Indication: TRANSITIONAL CELL CARCINOMA
     Dosage: 100 MG/M2, OTHER
     Route: 042

REACTIONS (1)
  - COLITIS ISCHAEMIC [None]
